FAERS Safety Report 6082960-9 (Version None)
Quarter: 2009Q1

REPORT INFORMATION
  Report Type: 
  Country: None (occurrence: None)
  Receive Date: 20090218
  Receipt Date: 20090213
  Transmission Date: 20090719
  Serious: No
  Sender: FDA-Public Use
  Company Number: US-B.I. PHARMACEUTICALS,INC./RIDGEFIELD-2009-BP-01894BP

PATIENT
  Sex: Female

DRUGS (1)
  1. CATAPRES-TTS-1 [Suspect]
     Indication: BLOOD PRESSURE
     Dosage: .3MG
     Route: 062
     Dates: start: 20090211

REACTIONS (2)
  - BLOOD PRESSURE DECREASED [None]
  - DRY MOUTH [None]
